FAERS Safety Report 9995135 (Version 1)
Quarter: 2014Q1

REPORT INFORMATION
  Report Type: Spontaneous
  Country: US (occurrence: None)
  Receive Date: 20140307
  Receipt Date: 20140307
  Transmission Date: 20141002
  Serious: Yes (Other)
  Sender: FDA-Public Use
  Company Number: None

PATIENT
  Age: 81 Year
  Sex: Male
  Weight: 120.2 kg

DRUGS (12)
  1. CIPRO [Suspect]
     Dosage: 2 PILLS A DAY FOR 5 DAYS ?ONE IN THE MORNING ?+ ONE AT NIGHT
     Dates: start: 20140720, end: 20140724
  2. SLEEP APNEA MACHINE [Concomitant]
  3. DILANTIN [Concomitant]
  4. PHEOBARBITOL [Concomitant]
  5. KOMBIGLYZEXR [Concomitant]
  6. WARFARIN [Concomitant]
  7. ALLOPURINAL [Concomitant]
  8. LOSARTAN [Concomitant]
  9. AMLODIPINE BESYLATE [Concomitant]
  10. FERROUS SULPHATE [Concomitant]
  11. B-12 [Concomitant]
  12. PRESERVISION WITH LUTREN [Concomitant]

REACTIONS (4)
  - Rash [None]
  - Pruritus [None]
  - Local swelling [None]
  - Joint swelling [None]
